FAERS Safety Report 6624761-6 (Version None)
Quarter: 2010Q1

REPORT INFORMATION
  Report Type: 
  Country: None (occurrence: None)
  Receive Date: 20100310
  Receipt Date: 20100301
  Transmission Date: 20100710
  Serious: Yes (Other)
  Sender: FDA-Public Use
  Company Number: NL-ROCHE-688953

PATIENT
  Age: 50 Year
  Sex: Male

DRUGS (5)
  1. ENFUVIRTIDE [Suspect]
     Route: 065
  2. MARAVIROC [Concomitant]
  3. TENOFOVIR [Concomitant]
  4. ZIDOVUDINE [Concomitant]
  5. LAMIVUDINE [Concomitant]

REACTIONS (2)
  - NERVOUS SYSTEM DISORDER [None]
  - TREATMENT FAILURE [None]
